FAERS Safety Report 10601538 (Version 1)
Quarter: 2014Q4

REPORT INFORMATION
  Report Type: Spontaneous
  Country: US (occurrence: None)
  Receive Date: 20141121
  Receipt Date: 20141121
  Transmission Date: 20150529
  Serious: Yes (Other)
  Sender: FDA-Public Use
  Company Number: None

PATIENT
  Age: 14 Year
  Sex: Male
  Weight: 52.62 kg

DRUGS (1)
  1. METHYLPHENIDATE ER 18 MG TAB [Suspect]
     Active Substance: METHYLPHENIDATE
     Indication: ATTENTION DEFICIT/HYPERACTIVITY DISORDER
     Dosage: 18MG, ONCE/DAY, P.O.
     Route: 048
     Dates: start: 200810

REACTIONS (3)
  - Headache [None]
  - Abdominal pain upper [None]
  - Haematemesis [None]

NARRATIVE: CASE EVENT DATE: 200810
